FAERS Safety Report 4280100-X (Version None)
Quarter: 2004Q1

REPORT INFORMATION
  Report Type: 
  Country: None (occurrence: None)
  Receive Date: 20040126
  Receipt Date: 20040112
  Transmission Date: 20041129
  Serious: No
  Sender: FDA-Public Use
  Company Number: 2004UW00765

PATIENT
  Age: 55 Year
  Sex: Female

DRUGS (5)
  1. CRESTOR [Suspect]
     Dosage: 10 MG QD; PO
     Route: 048
  2. LIPIDIL [Suspect]
     Dosage: 1 DF QD
  3. ADVAIR DISKUS 100/50 [Concomitant]
  4. ESTRACE [Concomitant]
  5. SYNTHROID [Concomitant]

REACTIONS (3)
  - DERMATITIS EXFOLIATIVE [None]
  - NAIL DISORDER [None]
  - OEDEMA PERIPHERAL [None]
